FAERS Safety Report 9495881 (Version 7)
Quarter: 2015Q2

REPORT INFORMATION
  Report Type: Report from Study
  Country: DE (occurrence: DE)
  Receive Date: 20130903
  Receipt Date: 20150403
  Transmission Date: 20150821
  Serious: Yes (Hospitalization)
  Sender: FDA-Public Use
  Company Number: DE-ROCHE-1267628

PATIENT
  Age: 75 Year
  Sex: Female
  Weight: 56 kg

DRUGS (10)
  1. SIMVASTATIN. [Concomitant]
     Active Substance: SIMVASTATIN
     Route: 065
     Dates: start: 201309
  2. ASPIRIN. [Concomitant]
     Active Substance: ASPIRIN
     Route: 065
     Dates: start: 201309
  3. DERMOXIN (GERMANY) [Concomitant]
     Dosage: DOSE: AS REQUIRED
     Route: 065
     Dates: start: 20111105
  4. VEMURAFENIB [Suspect]
     Active Substance: VEMURAFENIB
     Indication: MALIGNANT MELANOMA
     Dosage: MOST RECENT DOSE WITH LOT NO. 1101789 ON 15/JUN/2012
     Route: 048
     Dates: start: 20111026
  5. ALFASON [Concomitant]
     Dosage: DOSE: AS REQUIRED
     Route: 065
     Dates: start: 20111029
  6. DICLOFENAC [Concomitant]
     Active Substance: DICLOFENAC
     Route: 065
     Dates: start: 20111206
  7. PANTOZOL [Concomitant]
     Active Substance: PANTOPRAZOLE SODIUM
     Route: 065
  8. VEMURAFENIB [Suspect]
     Active Substance: VEMURAFENIB
     Dosage: MOST RECENT DOSE PRIOR TO STROKE ON 26/AUG/2013?MOST RECENT DOSE PRIOR TO DIARRHEA ON 22/OCT/2013
     Route: 048
     Dates: start: 20120616
  9. CARVEDILOL. [Concomitant]
     Active Substance: CARVEDILOL
     Route: 065
     Dates: start: 199005
  10. L-THYROXIN [Concomitant]
     Active Substance: LEVOTHYROXINE SODIUM
     Route: 065
     Dates: start: 20130405

REACTIONS (2)
  - Cerebrovascular accident [Recovered/Resolved]
  - Diarrhoea [Recovered/Resolved]

NARRATIVE: CASE EVENT DATE: 20130826
